FAERS Safety Report 4596590-9 (Version None)
Quarter: 2005Q1

REPORT INFORMATION
  Report Type: 
  Country: None (occurrence: None)
  Receive Date: 20050228
  Receipt Date: 20040413
  Transmission Date: 20050727
  Serious: Yes (Hospitalization)
  Sender: FDA-Public Use
  Company Number: 7806

PATIENT
  Age: 54 Year
  Sex: Female

DRUGS (4)
  1. ZOLEDRONATE [Suspect]
     Indication: METASTASES TO BONE
     Dosage: 4 MG MONTHLY IV
     Route: 042
     Dates: start: 20020403
  2. CYCLOPHOSPHAMIDE [Suspect]
     Dosage: 1 G
     Dates: start: 20020326, end: 20020515
  3. METHOTREXATE [Suspect]
     Dosage: 65 MG
     Dates: start: 20020326, end: 20020515
  4. FLUOROURACIL [Suspect]
     Dosage: 1 G
     Dates: start: 20020326, end: 20020515

REACTIONS (2)
  - FEBRILE NEUTROPENIA [None]
  - WHITE BLOOD CELL COUNT DECREASED [None]
